FAERS Safety Report 10091802 (Version 1)
Quarter: 2014Q2

REPORT INFORMATION
  Report Type: Spontaneous
  Country: US (occurrence: US)
  Receive Date: 20140421
  Receipt Date: 20140421
  Transmission Date: 20141212
  Serious: No
  Sender: FDA-Public Use
  Company Number: US-GILEAD-2012-0067130

PATIENT
  Sex: Female

DRUGS (3)
  1. LETAIRIS [Suspect]
     Indication: COR PULMONALE CHRONIC
     Dosage: 5 MG, QD
     Route: 048
     Dates: start: 20081007
  2. LETAIRIS [Suspect]
     Indication: PULMONARY HYPERTENSION
  3. TRACLEER                           /01587701/ [Suspect]
     Indication: PULMONARY HYPERTENSION
     Dosage: 125 MG, BID
     Dates: start: 20121228

REACTIONS (2)
  - Anaemia [Unknown]
  - Fatigue [Unknown]
